FAERS Safety Report 20059745 (Version 1)
Quarter: 2021Q4

REPORT INFORMATION
  Report Type: Spontaneous
  Country: US (occurrence: US)
  Receive Date: 20211111
  Receipt Date: 20211111
  Transmission Date: 20220303
  Serious: No
  Sender: FDA-Public Use
  Company Number: US-PFIZER INC-2019291808

PATIENT
  Age: 62 Year
  Sex: Female

DRUGS (3)
  1. PREMPRO [Suspect]
     Active Substance: ESTROGENS, CONJUGATED\MEDROXYPROGESTERONE ACETATE
     Indication: Menopause
     Dosage: 1 DF, 1X/DAY [0.3-1.5 MG/1 TABLET ONCE A DAY]
     Route: 048
  2. HUMALOG [Concomitant]
     Active Substance: INSULIN LISPRO
  3. LEVOTHYROXINE [Concomitant]
     Active Substance: LEVOTHYROXINE
     Indication: Hypothyroidism
     Dosage: 75 UG

REACTIONS (7)
  - Weight increased [Unknown]
  - Oedema [Unknown]
  - Dry throat [Unknown]
  - Hair disorder [Unknown]
  - Poor quality sleep [Unknown]
  - Fatigue [Unknown]
  - Pain in extremity [Unknown]
